FAERS Safety Report 15237820 (Version 2)
Quarter: 2018Q4

REPORT INFORMATION
  Report Type: Spontaneous
  Country: HU (occurrence: HU)
  Receive Date: 20180803
  Receipt Date: 20181023
  Transmission Date: 20190204
  Serious: Yes (Hospitalization, Other)
  Sender: FDA-Public Use
  Company Number: HU-TEVA-2018-HU-935292

PATIENT
  Age: 75 Year
  Sex: Female

DRUGS (1)
  1. VALSOTENS [Suspect]
     Active Substance: VALSARTAN
     Indication: HYPERTENSION
     Dates: start: 2012, end: 2016

REACTIONS (1)
  - Breast cancer female [Unknown]

NARRATIVE: CASE EVENT DATE: 2016
